FAERS Safety Report 7488321-X (Version None)
Quarter: 2011Q2

REPORT INFORMATION
  Report Type: 
  Country: None (occurrence: None)
  Receive Date: 20110518
  Receipt Date: 20110505
  Transmission Date: 20111010
  Serious: Yes (Hospitalization)
  Sender: FDA-Public Use
  Company Number: SE-ELI_LILLY_AND_COMPANY-SE201105002798

PATIENT
  Age: 34 Year
  Sex: Male

DRUGS (4)
  1. ALVEDON [Concomitant]
     Dosage: 500 MG, UNK
  2. BEHEPAN [Concomitant]
     Dosage: 1 MG, UNK
  3. DULOXETIME HYDROCHLORIDE [Suspect]
     Dosage: 30 MG, UNK
     Route: 048
     Dates: start: 20110201, end: 20110401
  4. TRAMADOL HCL [Concomitant]
     Dosage: 150 MG, UNK

REACTIONS (5)
  - PNEUMONIA [None]
  - DECREASED APPETITE [None]
  - THROMBOCYTOPENIA [None]
  - LEUKOPENIA [None]
  - WEIGHT DECREASED [None]
